FAERS Safety Report 23895245 (Version 2)
Quarter: 2024Q2

REPORT INFORMATION
  Report Type: Spontaneous
  Country: US (occurrence: US)
  Receive Date: 20240524
  Receipt Date: 20240528
  Transmission Date: 20240716
  Serious: No
  Sender: FDA-Public Use
  Company Number: US-ABBVIE-5769697

PATIENT
  Age: 60 Year
  Sex: Female

DRUGS (2)
  1. BOTOX [Suspect]
     Active Substance: ONABOTULINUMTOXINA
     Indication: Product used for unknown indication
     Dosage: TIME INTERVAL: AS NECESSARY: UNKNOWN
     Route: 065
     Dates: start: 20240327, end: 20240327
  2. VALTREX [Concomitant]
     Active Substance: VALACYCLOVIR HYDROCHLORIDE
     Indication: Product used for unknown indication

REACTIONS (5)
  - Facial asymmetry [Unknown]
  - Facial paresis [Unknown]
  - Hypoaesthesia [Unknown]
  - Paralysis [Unknown]
  - Bell^s palsy [Unknown]

NARRATIVE: CASE EVENT DATE: 20240101
